FAERS Safety Report 4920298-0 (Version None)
Quarter: 2006Q1

REPORT INFORMATION
  Report Type: 
  Country: None (occurrence: None)
  Receive Date: 20060223
  Receipt Date: 20060208
  Transmission Date: 20060701
  Serious: Yes (Disabling)
  Sender: FDA-Public Use
  Company Number: DE-GLAXOSMITHKLINE-D0048689A

PATIENT
  Age: 59 Year
  Sex: Female
  Weight: 65 kg

DRUGS (3)
  1. TWINRIX ADULT [Suspect]
     Indication: PROPHYLAXIS
     Route: 058
     Dates: start: 20050601, end: 20050601
  2. AMOXICILLIN [Suspect]
     Indication: BRONCHITIS
     Dosage: 700MG THREE TIMES PER DAY
     Route: 065
     Dates: start: 20050601
  3. SORTIS [Concomitant]
     Route: 065

REACTIONS (3)
  - HEPATIC ENZYME INCREASED [None]
  - PRURITUS [None]
  - RASH [None]
